FAERS Safety Report 20571786 (Version 3)
Quarter: 2022Q1

REPORT INFORMATION
  Report Type: Report from Study
  Country: DE (occurrence: DE)
  Receive Date: 20220309
  Receipt Date: 20220314
  Transmission Date: 20220423
  Serious: Yes (Life-Threatening, Hospitalization, Other)
  Sender: FDA-Public Use
  Company Number: DE-CELGENE-DEU-20220207602

PATIENT
  Age: 60 Year
  Sex: Male
  Weight: 107 kg

DRUGS (25)
  1. LENALIDOMIDE [Suspect]
     Active Substance: LENALIDOMIDE
     Indication: Plasma cell myeloma
     Dosage: 25 MILLIGRAM
     Route: 048
     Dates: start: 20191104, end: 20200520
  2. LENALIDOMIDE [Suspect]
     Active Substance: LENALIDOMIDE
     Dosage: 15 MILLIGRAM
     Route: 048
     Dates: start: 20200929, end: 20210106
  3. LENALIDOMIDE [Suspect]
     Active Substance: LENALIDOMIDE
     Dosage: 10 MILLIGRAM
     Route: 048
     Dates: start: 20220205, end: 202202
  4. ELOTUZUMAB [Suspect]
     Active Substance: ELOTUZUMAB
     Indication: Plasma cell myeloma
     Dosage: 1200 MILLIGRAM
     Route: 041
     Dates: start: 20191104, end: 20200318
  5. ELOTUZUMAB [Suspect]
     Active Substance: ELOTUZUMAB
     Dosage: 1080 MILLIGRAM
     Route: 041
     Dates: start: 20200402, end: 20200514
  6. ELOTUZUMAB [Suspect]
     Active Substance: ELOTUZUMAB
     Dosage: 1080 MILLIGRAM
     Route: 041
     Dates: start: 20200929, end: 20210105
  7. ELOTUZUMAB [Suspect]
     Active Substance: ELOTUZUMAB
     Dosage: 1080 MILLIGRAM
     Route: 041
     Dates: start: 20210202, end: 20220104
  8. CARFILZOMIB [Suspect]
     Active Substance: CARFILZOMIB
     Indication: Plasma cell myeloma
     Dosage: 47 MILLIGRAM
     Route: 041
     Dates: start: 20191104, end: 20191105
  9. CARFILZOMIB [Suspect]
     Active Substance: CARFILZOMIB
     Dosage: 84.6 MILLIGRAM
     Route: 041
     Dates: start: 20191111, end: 20200320
  10. CARFILZOMIB [Suspect]
     Active Substance: CARFILZOMIB
     Dosage: 81 MILLIGRAM
     Route: 041
     Dates: start: 20200402, end: 20200514
  11. CARFILZOMIB [Suspect]
     Active Substance: CARFILZOMIB
     Dosage: 81.72 MILLIGRAM
     Route: 041
     Dates: start: 20200920, end: 20210107
  12. DEXAMETHASONE [Suspect]
     Active Substance: DEXAMETHASONE
     Indication: Plasma cell myeloma
     Dosage: 8 MILLIGRAM
     Route: 041
     Dates: start: 20191104, end: 20191222
  13. DEXAMETHASONE [Suspect]
     Active Substance: DEXAMETHASONE
     Dosage: 28 MILLIGRAM
     Route: 048
     Dates: start: 20191104, end: 20210105
  14. DEXAMETHASONE [Suspect]
     Active Substance: DEXAMETHASONE
     Dosage: 40 MILLIGRAM
     Route: 048
     Dates: start: 20200106, end: 20200106
  15. DEXAMETHASONE [Suspect]
     Active Substance: DEXAMETHASONE
     Dosage: 40 MILLIGRAM
     Route: 048
     Dates: start: 20200120, end: 20200120
  16. DEXAMETHASONE [Suspect]
     Active Substance: DEXAMETHASONE
     Dosage: 20 MILLIGRAM
     Route: 048
     Dates: start: 20200113, end: 20200113
  17. DEXAMETHASONE [Suspect]
     Active Substance: DEXAMETHASONE
     Dosage: 40 MILLIGRAM
     Route: 048
     Dates: start: 20200312, end: 20200312
  18. DEXAMETHASONE [Suspect]
     Active Substance: DEXAMETHASONE
     Dosage: 20 MILLIGRAM
     Route: 048
     Dates: start: 20200319, end: 20200319
  19. DEXAMETHASONE [Suspect]
     Active Substance: DEXAMETHASONE
     Dosage: 40 MILLIGRAM
     Route: 048
     Dates: start: 20200326, end: 20200326
  20. DEXAMETHASONE [Suspect]
     Active Substance: DEXAMETHASONE
     Dosage: 40 MILLIGRAM
     Route: 048
     Dates: start: 20200409, end: 20200409
  21. DEXAMETHASONE [Suspect]
     Active Substance: DEXAMETHASONE
     Dosage: 40 MILLIGRAM
     Route: 048
     Dates: start: 20200423, end: 20200423
  22. DEXAMETHASONE [Suspect]
     Active Substance: DEXAMETHASONE
     Dosage: 40 MILLIGRAM
     Route: 048
     Dates: start: 20200506, end: 20200506
  23. DEXAMETHASONE [Suspect]
     Active Substance: DEXAMETHASONE
     Dosage: 40 MILLIGRAM
     Route: 048
     Dates: start: 20200520, end: 20200520
  24. DEXAMETHASONE [Suspect]
     Active Substance: DEXAMETHASONE
     Dosage: 20 MILLIGRAM
     Route: 048
     Dates: start: 20201006, end: 20201229
  25. VALSARTAN [Concomitant]
     Active Substance: VALSARTAN
     Indication: Hypertension
     Route: 048

REACTIONS (1)
  - Acute myeloid leukaemia [Not Recovered/Not Resolved]

NARRATIVE: CASE EVENT DATE: 20220217
